FAERS Safety Report 5725854-8 (Version None)
Quarter: 2008Q2

REPORT INFORMATION
  Report Type: 
  Country: None (occurrence: None)
  Receive Date: 20080429
  Receipt Date: 20080421
  Transmission Date: 20081010
  Serious: Yes (Other)
  Sender: FDA-Public Use
  Company Number: 2008SP005971

PATIENT
  Sex: Female

DRUGS (5)
  1. CORICIDIN HBP COLD + FLU (2 MG) [Suspect]
     Indication: RHINORRHOEA
     Dosage: UNK PO; ONCE PO
     Route: 048
     Dates: start: 20080229
  2. CORICIDIN HBP COLD + FLU (2 MG) [Suspect]
     Indication: SNEEZING
     Dosage: UNK PO; ONCE PO
     Route: 048
     Dates: start: 20080229
  3. CORICIDIN HBP COLD + FLU (2 MG) [Suspect]
     Indication: RHINORRHOEA
     Dosage: UNK PO; ONCE PO
     Route: 048
     Dates: start: 20080323
  4. CORICIDIN HBP COLD + FLU (2 MG) [Suspect]
     Indication: SNEEZING
     Dosage: UNK PO; ONCE PO
     Route: 048
     Dates: start: 20080323
  5. LISINOPRIL [Concomitant]

REACTIONS (1)
  - BLOOD PRESSURE INCREASED [None]
